FAERS Safety Report 20030432 (Version 2)
Quarter: 2021Q4

REPORT INFORMATION
  Report Type: Report from Study
  Country: GB (occurrence: GB)
  Receive Date: 20211103
  Receipt Date: 20211111
  Transmission Date: 20220304
  Serious: Yes (Hospitalization)
  Sender: FDA-Public Use
  Company Number: GB-PFIZER INC-202101435258

PATIENT
  Age: 55 Year
  Sex: Female
  Weight: 116.2 kg

DRUGS (7)
  1. CRIZOTINIB [Suspect]
     Active Substance: CRIZOTINIB
     Dosage: 250 MG, 1X/DAY
     Dates: start: 20210915, end: 20211013
  2. FULVESTRANT [Suspect]
     Active Substance: FULVESTRANT
     Dosage: 500 MG EVERY FORTNIGHTLY
     Dates: start: 20210915, end: 20211014
  3. ALGINIC ACID\ALUMINUM HYDROXIDE\SODIUM BICARBONATE [Concomitant]
     Active Substance: ALGINIC ACID\ALUMINUM HYDROXIDE\SODIUM BICARBONATE
     Indication: Dyspepsia
     Dosage: UNK
     Route: 048
     Dates: start: 20210915
  4. ACETAMINOPHEN [Concomitant]
     Active Substance: ACETAMINOPHEN
     Indication: Arthralgia
     Dosage: UNK
     Route: 048
  5. DALTEPARIN [Concomitant]
     Active Substance: DALTEPARIN
     Indication: Deep vein thrombosis
     Dosage: UNK
     Route: 048
     Dates: start: 20210908, end: 20211013
  6. LACTULOSE [Concomitant]
     Active Substance: LACTULOSE
     Indication: Constipation
     Dosage: UNK
     Route: 048
     Dates: start: 20211007, end: 20211013
  7. SENNA [Concomitant]
     Active Substance: SENNA LEAF\SENNOSIDES\SENNOSIDES A AND B
     Indication: Dyspepsia
     Dosage: UNK
     Route: 048
     Dates: start: 20211007, end: 20211013

REACTIONS (1)
  - Ascites [Recovered/Resolved]

NARRATIVE: CASE EVENT DATE: 20211014
